FAERS Safety Report 8524212-0 (Version None)
Quarter: 2012Q3

REPORT INFORMATION
  Report Type: 
  Country: None (occurrence: None)
  Receive Date: 20120720
  Receipt Date: 20120706
  Transmission Date: 20120928
  Serious: Yes (Hospitalization)
  Sender: FDA-Public Use
  Company Number: FR-VERTEX PHARMACEUTICALS INC.-000000000000000645

PATIENT
  Sex: Female
  Weight: 55 kg

DRUGS (6)
  1. PEGASYS [Concomitant]
     Dosage: DOSAGE FORM: UNSPECIFIED
     Route: 065
     Dates: start: 20111208
  2. COPEGUS [Concomitant]
     Indication: HEPATITIS C
     Dosage: DOSAGE FORM: UNSPECIFIED
     Route: 065
     Dates: start: 20111117, end: 20111215
  3. PEGASYS [Concomitant]
     Indication: HEPATITIS C
     Dosage: DOSAGE FORM: UNSPECIFIED
     Route: 058
     Dates: start: 20111215, end: 20111215
  4. ASPIRIN [Concomitant]
  5. INCIVO [Suspect]
     Indication: HEPATITIS C
     Dosage: DOSAGE FORM: TABLET
     Route: 048
     Dates: start: 20111117, end: 20111215
  6. PEGASYS [Concomitant]
     Dosage: DOSAGE FORM: UNSPECIFIED
     Route: 065
     Dates: start: 20111117

REACTIONS (6)
  - ASTHENIA [None]
  - VERTIGO [None]
  - GENERAL PHYSICAL HEALTH DETERIORATION [None]
  - DEPRESSION [None]
  - THROMBOCYTOPENIA [None]
  - GINGIVAL BLEEDING [None]
